FAERS Safety Report 15393773 (Version 5)
Quarter: 2019Q2

REPORT INFORMATION
  Report Type: Spontaneous
  Country: US (occurrence: US)
  Receive Date: 20180917
  Receipt Date: 20190423
  Transmission Date: 20190711
  Serious: No
  Sender: FDA-Public Use
  Company Number: US-PFIZER INC-2018375416

PATIENT
  Age: 68 Year
  Sex: Female
  Weight: 63.49 kg

DRUGS (1)
  1. FLECTOR [Suspect]
     Active Substance: DICLOFENAC EPOLAMINE
     Indication: BACK PAIN
     Dosage: 1 PATCH, 2X/DAY (EVERY 12 HOURS)
     Dates: start: 2018, end: 2019

REACTIONS (3)
  - Drug ineffective [Recovering/Resolving]
  - Fall [Unknown]
  - Insomnia [Unknown]

NARRATIVE: CASE EVENT DATE: 201811
